FAERS Safety Report 15371989 (Version 1)
Quarter: 2018Q3

REPORT INFORMATION
  Report Type: Report from Study
  Country: US (occurrence: US)
  Receive Date: 20180911
  Receipt Date: 20180911
  Transmission Date: 20181010
  Serious: Yes (Death, Life-Threatening, Other)
  Sender: FDA-Public Use
  Company Number: US-TEVA-2018-US-952606

PATIENT
  Age: 68 Year
  Sex: Female

DRUGS (4)
  1. ZOLPIDEM [Suspect]
     Active Substance: ZOLPIDEM\ZOLPIDEM TARTRATE
     Route: 065
  2. OXYCODONE [Suspect]
     Active Substance: OXYCODONE
     Route: 065
  3. DULOXETINE. [Suspect]
     Active Substance: DULOXETINE
     Route: 065
  4. NORTRIPTYLINE [Suspect]
     Active Substance: NORTRIPTYLINE
     Route: 065

REACTIONS (17)
  - Toxicity to various agents [Fatal]
  - Tremor [Unknown]
  - Metabolic acidosis [Unknown]
  - Tachycardia [Unknown]
  - Pancreatitis [Unknown]
  - Hypertension [Unknown]
  - Acute respiratory distress syndrome [Unknown]
  - Respiratory depression [Unknown]
  - Acute kidney injury [Unknown]
  - Hypotension [Unknown]
  - Agitation [Unknown]
  - Hyperreflexia [Unknown]
  - Pneumonia aspiration [Unknown]
  - Acute lung injury [Unknown]
  - Pancytopenia [Unknown]
  - Delirium [Unknown]
  - Rhabdomyolysis [Unknown]
